FAERS Safety Report 12362351 (Version 1)
Quarter: 2016Q2

REPORT INFORMATION
  Report Type: Spontaneous
  Country: US (occurrence: US)
  Receive Date: 20160512
  Receipt Date: 20160512
  Transmission Date: 20160815
  Serious: No
  Sender: FDA-Public Use
  Company Number: US-MYLANLABS-2015M1034356

PATIENT
  Sex: Female

DRUGS (1)
  1. BUPROPION HYDROCHLORIDE SR [Suspect]
     Active Substance: BUPROPION HYDROCHLORIDE
     Indication: DEPRESSION
     Dosage: 100 MG, QD
     Route: 048
     Dates: start: 20151003, end: 20151005

REACTIONS (3)
  - Abdominal discomfort [Recovering/Resolving]
  - Ocular hyperaemia [Recovering/Resolving]
  - Reaction to drug excipients [Recovering/Resolving]

NARRATIVE: CASE EVENT DATE: 20151004
